FAERS Safety Report 5877468-7 (Version None)
Quarter: 2008Q3

REPORT INFORMATION
  Report Type: 
  Country: None (occurrence: None)
  Receive Date: 20080909
  Receipt Date: 20080826
  Transmission Date: 20090109
  Serious: Yes (Hospitalization)
  Sender: FDA-Public Use
  Company Number: 2008S1015608

PATIENT
  Age: 43 Year
  Sex: Male

DRUGS (1)
  1. EXTENDED PHENYTOIN SODIUM CAPSULES, USP (100 MG) [Suspect]
     Indication: CONVULSION
     Dosage: 300 MG; AT BEDTIME; ORAL
     Route: 048
     Dates: start: 20060201

REACTIONS (3)
  - ANTICONVULSANT DRUG LEVEL BELOW THERAPEUTIC [None]
  - CONVULSION [None]
  - THERAPEUTIC RESPONSE UNEXPECTED WITH DRUG SUBSTITUTION [None]
